FAERS Safety Report 14861090 (Version 1)
Quarter: 2018Q2

REPORT INFORMATION
  Report Type: Spontaneous
  Country: US (occurrence: US)
  Receive Date: 20180422
  Receipt Date: 20180422
  Transmission Date: 20180711
  Serious: No
  Sender: FDA-Public Use
  Company Number: None

PATIENT
  Age: 77 Year
  Sex: Male
  Weight: 99 kg

DRUGS (6)
  1. AMLODIPINE BESYLATE. [Concomitant]
     Active Substance: AMLODIPINE BESYLATE
  2. TERAZOSIN [Concomitant]
     Active Substance: TERAZOSIN\TERAZOSIN HYDROCHLORIDE
  3. MELOXICAM. [Concomitant]
     Active Substance: MELOXICAM
  4. ZESTORETIC [Concomitant]
     Active Substance: HYDROCHLOROTHIAZIDE\LISINOPRIL
  5. DUTASTERIDE. [Concomitant]
     Active Substance: DUTASTERIDE
  6. CHLORHEXIDINE GLUCONATE 0.12% ORAL RINSE, USP [Suspect]
     Active Substance: CHLORHEXIDINE GLUCONATE
     Indication: TOOTH INFECTION
     Dosage: ?          QUANTITY:.5 OUNCE(S);?
     Route: 048
     Dates: start: 20180417, end: 20180421

REACTIONS (2)
  - Gingival discolouration [None]
  - Trichoglossia [None]

NARRATIVE: CASE EVENT DATE: 20180421
